FAERS Safety Report 13356656 (Version 2)
Quarter: 2017Q2

REPORT INFORMATION
  Report Type: Report from Study
  Country: US (occurrence: US)
  Receive Date: 20170321
  Receipt Date: 20170403
  Transmission Date: 20170830
  Serious: Yes (Death)
  Sender: FDA-Public Use
  Company Number: US-ACTELION-A-NJ2016-138912

PATIENT
  Age: 89 Year
  Sex: Male

DRUGS (9)
  1. MORPHINE [Concomitant]
     Active Substance: MORPHINE
     Dosage: 8-10 MG Q2H PRN
  2. ADCIRCA [Concomitant]
     Active Substance: TADALAFIL
  3. DIGOXIN. [Concomitant]
     Active Substance: DIGOXIN
     Dosage: 0.125 MG, QD
     Dates: start: 20161004
  4. COUMADIN [Concomitant]
     Active Substance: WARFARIN SODIUM
     Dosage: 5 MG, QD
     Dates: start: 20161018
  5. FUROSEMIDE. [Concomitant]
     Active Substance: FUROSEMIDE
     Dosage: 10 MG, BID
  6. POTASSIUM CHLORIDE. [Concomitant]
     Active Substance: POTASSIUM CHLORIDE
     Dosage: 10 MEQ, BID
  7. OPSUMIT [Suspect]
     Active Substance: MACITENTAN
     Indication: PULMONARY ARTERIAL HYPERTENSION
     Dosage: 10 MG, QD
     Route: 048
     Dates: start: 20140711, end: 20161205
  8. UPTRAVI [Suspect]
     Active Substance: SELEXIPAG
     Indication: PULMONARY ARTERIAL HYPERTENSION
     Dosage: 600 MCG, BID
     Route: 048
     Dates: start: 20161018, end: 20161205
  9. UPTRAVI [Suspect]
     Active Substance: SELEXIPAG
     Dosage: UNK
     Route: 048
     Dates: start: 20160923

REACTIONS (16)
  - Disease progression [Fatal]
  - Arthralgia [Unknown]
  - Swelling [Unknown]
  - Pain in extremity [Unknown]
  - Fatigue [Unknown]
  - Tremor [Unknown]
  - Treatment noncompliance [Unknown]
  - Pulmonary hypertension [Fatal]
  - Peripheral swelling [Unknown]
  - Concomitant disease aggravated [Unknown]
  - Constipation [Unknown]
  - Dyspepsia [Unknown]
  - Fluid retention [Unknown]
  - Oedema [Unknown]
  - Right ventricular failure [Fatal]
  - Dyspnoea [Unknown]

NARRATIVE: CASE EVENT DATE: 20161205
